FAERS Safety Report 9158607 (Version 2)
Quarter: 2013Q1

REPORT INFORMATION
  Report Type: Report from Study
  Country: BR (occurrence: BR)
  Receive Date: 20130312
  Receipt Date: 20130318
  Transmission Date: 20140127
  Serious: Yes (Other)
  Sender: FDA-Public Use
  Company Number: BR-ABBOTT-13P-020-1061742-00

PATIENT
  Sex: Female
  Weight: 63 kg

DRUGS (2)
  1. HUMIRA [Suspect]
     Indication: RHEUMATOID ARTHRITIS
     Route: 058
     Dates: start: 20080924, end: 2011
  2. ARAVA [Concomitant]
     Indication: RHEUMATOID ARTHRITIS
     Route: 048
     Dates: start: 2008

REACTIONS (2)
  - Varicose veins pelvic [Recovered/Resolved]
  - Blood cholesterol increased [Unknown]
